FAERS Safety Report 25356492 (Version 1)
Quarter: 2025Q2

REPORT INFORMATION
  Report Type: Other
  Country: RO (occurrence: RO)
  Receive Date: 20250526
  Receipt Date: 20250526
  Transmission Date: 20250716
  Serious: Yes (Death, Hospitalization)
  Sender: ANI
  Company Number: RO-ANIPHARMA-022903

PATIENT
  Age: 79 Year
  Sex: Female

DRUGS (4)
  1. OXACILLIN [Suspect]
     Active Substance: OXACILLIN SODIUM
     Indication: Staphylococcal sepsis
  2. IVERMECTIN [Concomitant]
     Active Substance: IVERMECTIN
     Indication: Scabies
  3. EPINEPHRINE [Concomitant]
     Active Substance: EPINEPHRINE
     Indication: Anaphylactic reaction
     Route: 030
  4. HYDROCORTISONE HEMISUCCINATE [Concomitant]
     Active Substance: HYDROCORTISONE HEMISUCCINATE
     Indication: Anaphylactic reaction

REACTIONS (1)
  - Drug ineffective [Fatal]
